FAERS Safety Report 24773380 (Version 1)
Quarter: 2024Q4

REPORT INFORMATION
  Report Type: Report from Study
  Country: BR (occurrence: BR)
  Receive Date: 20241225
  Receipt Date: 20241225
  Transmission Date: 20250114
  Serious: Yes (Other)
  Sender: EMD SERONO INC
  Company Number: BR-Merck Healthcare KGaA-2024067903

PATIENT
  Age: 33 Year
  Sex: Female

DRUGS (18)
  1. REBIF [Suspect]
     Active Substance: INTERFERON BETA-1A
     Indication: Multiple sclerosis
     Dates: start: 20171020, end: 20190726
  2. LOSARTAN [Concomitant]
     Active Substance: LOSARTAN
     Indication: Hypertension
     Dates: start: 2016
  3. DIPYRONE [Concomitant]
     Active Substance: DIPYRONE
     Indication: Headache
     Dosage: IN THE MORNING
  4. FLUOXETINE [Concomitant]
     Active Substance: FLUOXETINE HYDROCHLORIDE
     Indication: Bedridden
  5. FLUOXETINE [Concomitant]
     Active Substance: FLUOXETINE HYDROCHLORIDE
  6. FLUOXETINE [Concomitant]
     Active Substance: FLUOXETINE HYDROCHLORIDE
     Dates: start: 2016, end: 2019
  7. VITAMIN B COMPLEX [Concomitant]
     Active Substance: CYANOCOBALAMIN\DEXPANTHENOL\NIACINAMIDE\PYRIDOXINE HYDROCHLORIDE\RIBOFLAVIN 5^-PHOSPHATE SODIUM\THIA
     Indication: Alopecia
     Dosage: IN THE MORNING
     Dates: start: 2016, end: 2020
  8. VITAMIN D3 [Concomitant]
     Active Substance: CHOLECALCIFEROL
     Indication: Vitamin D deficiency
     Dosage: ONE WEEK EVERY DAY AND NOW ONCE A WEEK (MONDAY) IN THE MORNING AROUND 8:00 AM AFTER BF.
  9. VITAMIN D3 [Concomitant]
     Active Substance: CHOLECALCIFEROL
     Indication: Immune system disorder
  10. ACETAMINOPHEN [Concomitant]
     Active Substance: ACETAMINOPHEN
     Indication: Spinal pain
     Dosage: SUSPENDED AND DID NOT REMEMBER THE DOSAGE
  11. ACETAMINOPHEN [Concomitant]
     Active Substance: ACETAMINOPHEN
     Indication: Arthralgia
  12. PREGABALIN [Concomitant]
     Active Substance: PREGABALIN
     Indication: Arthralgia
     Dosage: AT 20:30
  13. PREGABALIN [Concomitant]
     Active Substance: PREGABALIN
     Indication: Spinal pain
  14. PREGABALIN [Concomitant]
     Active Substance: PREGABALIN
     Indication: Neuritis
  15. AMLODIPINE [Concomitant]
     Active Substance: AMLODIPINE BESYLATE
     Indication: Infarction
     Dosage: IN THE MORNING AROUND 09:00
     Dates: start: 2016
  16. SUMATRIPTAN SUCCINATE [Concomitant]
     Active Substance: SUMATRIPTAN SUCCINATE
     Indication: Migraine
     Dates: start: 2016, end: 2020
  17. SUMATRIPTAN SUCCINATE [Concomitant]
     Active Substance: SUMATRIPTAN SUCCINATE
     Indication: Vision blurred
  18. PREDNISONE [Concomitant]
     Active Substance: PREDNISONE
     Indication: Immune system disorder

REACTIONS (7)
  - Diabetes mellitus [Not Recovered/Not Resolved]
  - Blindness unilateral [Not Recovered/Not Resolved]
  - Cerebrovascular accident [Recovered/Resolved]
  - Muscular weakness [Not Recovered/Not Resolved]
  - Muscle spasms [Not Recovered/Not Resolved]
  - Insomnia [Not Recovered/Not Resolved]
  - Gait disturbance [Unknown]

NARRATIVE: CASE EVENT DATE: 20170101
